FAERS Safety Report 18750838 (Version 2)
Quarter: 2021Q1

REPORT INFORMATION
  Report Type: Spontaneous
  Country: AT (occurrence: AT)
  Receive Date: 20210118
  Receipt Date: 20210123
  Transmission Date: 20210419
  Serious: Yes (Death, Other)
  Sender: FDA-Public Use
  Company Number: AT-ROCHE-2737300

PATIENT
  Age: 75 Year
  Sex: Male

DRUGS (3)
  1. ALECENSA [Suspect]
     Active Substance: ALECTINIB HYDROCHLORIDE
     Indication: NON-SMALL CELL LUNG CANCER
     Dosage: (3?0?3)
     Route: 065
  2. ALECENSA [Suspect]
     Active Substance: ALECTINIB HYDROCHLORIDE
     Dosage: REDUCED DOSE 2?0?2
     Route: 065
     Dates: start: 20201217
  3. ALECENSA [Suspect]
     Active Substance: ALECTINIB HYDROCHLORIDE
     Dosage: 3?0?3
     Route: 065
     Dates: start: 20201203

REACTIONS (10)
  - Transaminases increased [Unknown]
  - Constipation [Unknown]
  - Cough [Unknown]
  - Asthenia [Unknown]
  - Pleural effusion [Unknown]
  - Dyspnoea [Unknown]
  - Bone pain [Unknown]
  - Vomiting [Unknown]
  - Dyspnoea [Fatal]
  - Oedema [Unknown]

NARRATIVE: CASE EVENT DATE: 20210110
